FAERS Safety Report 23880343 (Version 1)
Quarter: 2024Q2

REPORT INFORMATION
  Report Type: Spontaneous
  Country: US (occurrence: None)
  Receive Date: 20240521
  Receipt Date: 20240521
  Transmission Date: 20240716
  Serious: Yes (Life-Threatening, Hospitalization)
  Sender: FDA-Public Use
  Company Number: None

PATIENT
  Age: 73 Year
  Sex: Male

DRUGS (2)
  1. BUSPIRONE HCL [Suspect]
     Active Substance: BUSPIRONE HYDROCHLORIDE
     Indication: Anxiety
     Dosage: 7.5 MG BID PO
     Route: 048
     Dates: start: 20231228, end: 20240214
  2. SOTORASIB [Suspect]
     Active Substance: SOTORASIB
     Indication: Non-small cell lung cancer
     Dosage: 960 MG EVERY DAY PO?
     Route: 048
     Dates: start: 20231228, end: 20240214

REACTIONS (2)
  - Erythema multiforme [None]
  - Cellulitis [None]

NARRATIVE: CASE EVENT DATE: 20240214
